FAERS Safety Report 6124757-7 (Version None)
Quarter: 2009Q1

REPORT INFORMATION
  Report Type: 
  Country: None (occurrence: None)
  Receive Date: 20090319
  Receipt Date: 20090309
  Transmission Date: 20090719
  Serious: Yes (Hospitalization)
  Sender: FDA-Public Use
  Company Number: IN-PFIZER INC-2009180665

PATIENT

DRUGS (1)
  1. CEFOPERAZONE SODIUM [Suspect]
     Indication: PNEUMONIA PNEUMOCOCCAL
     Dosage: 2 MG, 2X/DAY

REACTIONS (1)
  - LEUKOCYTOCLASTIC VASCULITIS [None]
